FAERS Safety Report 10969908 (Version 1)
Quarter: 2015Q1

REPORT INFORMATION
  Report Type: Spontaneous
  Country: US (occurrence: None)
  Receive Date: 20150330
  Receipt Date: 20150330
  Transmission Date: 20150721
  Serious: Yes (Other)
  Sender: FDA-Public Use
  Company Number: None

PATIENT
  Age: 24 Year
  Sex: Female
  Weight: 53.52 kg

DRUGS (4)
  1. WOMEN^S ONE-A-DAY [Concomitant]
  2. KLARON [Concomitant]
     Active Substance: SULFACETAMIDE SODIUM
  3. YASMIN [Suspect]
     Active Substance: DROSPIRENONE\ETHINYL ESTRADIOL
  4. REPHRESH PRO-B [Concomitant]

REACTIONS (1)
  - Metrorrhagia [None]

NARRATIVE: CASE EVENT DATE: 20150318
